FAERS Safety Report 6795791-9 (Version None)
Quarter: 2010Q2

REPORT INFORMATION
  Report Type: 
  Country: None (occurrence: None)
  Receive Date: 20100625
  Receipt Date: 20100617
  Transmission Date: 20101027
  Serious: Yes (Hospitalization)
  Sender: FDA-Public Use
  Company Number: GXKR2010DE06706

PATIENT
  Age: 30 Year

DRUGS (5)
  1. VENLAFAXINE HCL [Suspect]
     Indication: SCHIZOPHRENIA
     Dosage: GRADUALLY INCREASED TO 300 MG/DAY
  2. QUETIAPINE [Concomitant]
     Indication: SCHIZOPHRENIA
     Dosage: STOPPED MULTIPLE TIMES
  3. QUETIAPINE [Concomitant]
     Dosage: RESUMED AT THE AGE OF 33
  4. CLOMIPRAMINE [Concomitant]
     Indication: SCHIZOPHRENIA
     Dosage: INITIATED AT AGE 33
  5. VALPROIC ACID [Concomitant]
     Indication: SCHIZOPHRENIA
     Dosage: INITIATED AT AGE 33

REACTIONS (13)
  - AGITATION [None]
  - DELUSION OF GRANDEUR [None]
  - DISSOCIATION [None]
  - DISTURBANCE IN ATTENTION [None]
  - DRUG ABUSE [None]
  - DRUG DEPENDENCE [None]
  - DYSPHORIA [None]
  - EUPHORIC MOOD [None]
  - LOGORRHOEA [None]
  - MANIA [None]
  - PSYCHOMOTOR HYPERACTIVITY [None]
  - TACHYPHRENIA [None]
  - TREATMENT NONCOMPLIANCE [None]
